FAERS Safety Report 15058930 (Version 1)
Quarter: 2018Q2

REPORT INFORMATION
  Report Type: Spontaneous
  Country: US (occurrence: US)
  Receive Date: 20180625
  Receipt Date: 20180625
  Transmission Date: 20180711
  Serious: No
  Sender: FDA-Public Use
  Company Number: US-MYLANLABS-2018M1037420

PATIENT
  Age: 20 Year
  Sex: Female
  Weight: 91 kg

DRUGS (1)
  1. XULANE [Suspect]
     Active Substance: ETHINYL ESTRADIOL\NORELGESTROMIN
     Indication: CONTRACEPTION
     Dosage: 1 DF, QW
     Route: 065
     Dates: start: 20180510

REACTIONS (5)
  - Erythema [Unknown]
  - Sunburn [Not Recovered/Not Resolved]
  - Application site pain [Unknown]
  - Pruritus [Unknown]
  - Application site vesicles [Unknown]

NARRATIVE: CASE EVENT DATE: 201805
